FAERS Safety Report 7311652-0 (Version None)
Quarter: 2011Q1

REPORT INFORMATION
  Report Type: 
  Country: None (occurrence: None)
  Receive Date: 20110215
  Receipt Date: 20110215
  Transmission Date: 20110831
  Serious: Yes (Other)
  Sender: FDA-Public Use
  Company Number: None

PATIENT
  Age: 44 Year
  Sex: Male

DRUGS (3)
  1. COUMADIN [Concomitant]
  2. ETOPOSIDE [Suspect]
     Dosage: 200-211 M 4 TIMES IV
     Route: 042
     Dates: start: 20090810, end: 20091230
  3. IFOSFAMIDE [Suspect]
     Indication: NEURILEMMOMA MALIGNANT
     Dosage: 3600-3798 MG 8 TIMES IV
     Route: 042
     Dates: start: 20090630, end: 20091230

REACTIONS (2)
  - DYSPNOEA [None]
  - ACUTE MYELOID LEUKAEMIA [None]
